FAERS Safety Report 11301604 (Version 1)
Quarter: 2015Q3

REPORT INFORMATION
  Report Type: Spontaneous
  Country: US (occurrence: US)
  Receive Date: 20150722
  Receipt Date: 20150722
  Transmission Date: 20151125
  Serious: No
  Sender: FDA-Public Use
  Company Number: US-ELI_LILLY_AND_COMPANY-US200908004627

PATIENT
  Sex: Female

DRUGS (3)
  1. HUMATROPE [Suspect]
     Active Substance: SOMATROPIN
     Indication: GROWTH HORMONE DEFICIENCY
     Dosage: 0.2 MG, DAILY (1/D)
     Dates: start: 20090709
  2. HUMATROPE [Suspect]
     Active Substance: SOMATROPIN
     Dosage: 2.5 MG, DAILY (1/D)
     Dates: start: 2009
  3. HUMATROPE [Suspect]
     Active Substance: SOMATROPIN
     Dosage: 2 MG, DAILY (1/D)
     Dates: start: 200908

REACTIONS (4)
  - Insomnia [Unknown]
  - Feeling abnormal [Unknown]
  - Abdominal pain [Unknown]
  - Fatigue [Unknown]

NARRATIVE: CASE EVENT DATE: 200908
